FAERS Safety Report 12613554 (Version 1)
Quarter: 2016Q3

REPORT INFORMATION
  Report Type: Spontaneous
  Country: US (occurrence: None)
  Receive Date: 20160801
  Receipt Date: 20160801
  Transmission Date: 20161109
  Serious: Yes (Disabling)
  Sender: FDA-Public Use
  Company Number: None

PATIENT
  Age: 49 Year
  Sex: Female
  Weight: 66.23 kg

DRUGS (13)
  1. PAXIL [Concomitant]
     Active Substance: PAROXETINE HYDROCHLORIDE
  2. FAMOTIDINE. [Concomitant]
     Active Substance: FAMOTIDINE
  3. VALTREX [Concomitant]
     Active Substance: VALACYCLOVIR HYDROCHLORIDE
  4. VITAMIN B [Concomitant]
     Active Substance: VITAMIN B
  5. ATIVAN [Concomitant]
     Active Substance: LORAZEPAM
  6. NASONEX [Concomitant]
     Active Substance: MOMETASONE FUROATE
  7. VICODIN [Concomitant]
     Active Substance: ACETAMINOPHEN\HYDROCODONE BITARTRATE
  8. ZYRTEC [Concomitant]
     Active Substance: CETIRIZINE HYDROCHLORIDE
  9. LAMOTRIGINE, 200 MG NORTHSTAR [Suspect]
     Active Substance: LAMOTRIGINE
     Indication: SEIZURE
     Route: 048
     Dates: start: 20160216, end: 20160216
  10. LAMOTRIGINE, 200 MG NORTHSTAR [Suspect]
     Active Substance: LAMOTRIGINE
     Indication: CONVERSION DISORDER
     Route: 048
     Dates: start: 20160216, end: 20160216
  11. LAMOTRIGINE, 200 MG NORTHSTAR [Suspect]
     Active Substance: LAMOTRIGINE
     Indication: BIPOLAR DISORDER
     Route: 048
     Dates: start: 20160216, end: 20160216
  12. ROBAXIN [Concomitant]
     Active Substance: METHOCARBAMOL
  13. ST. JOHN^S WORT [Concomitant]
     Active Substance: ST. JOHN^S WORT

REACTIONS (1)
  - Blood glucose increased [None]

NARRATIVE: CASE EVENT DATE: 20160511
